FAERS Safety Report 25830456 (Version 2)
Quarter: 2025Q3

REPORT INFORMATION
  Report Type: Spontaneous
  Country: US (occurrence: US)
  Receive Date: 20250922
  Receipt Date: 20250927
  Transmission Date: 20251020
  Serious: Yes (Other)
  Sender: SANOFI AVENTIS
  Company Number: US-SANOFI-02653670

PATIENT
  Age: 63 Year
  Sex: Female

DRUGS (1)
  1. LANTUS SOLOSTAR [Suspect]
     Active Substance: INSULIN GLARGINE
     Indication: Type 2 diabetes mellitus
     Dosage: 12 U QAM AND 34 U HS,
     Route: 065
     Dates: start: 2022

REACTIONS (4)
  - Chronic kidney disease [Unknown]
  - Visual impairment [Unknown]
  - Expired product administered [Unknown]
  - Off label use [Unknown]

NARRATIVE: CASE EVENT DATE: 20250901
